FAERS Safety Report 4291704-2 (Version None)
Quarter: 2004Q1

REPORT INFORMATION
  Report Type: 
  Country: None (occurrence: None)
  Receive Date: 20040211
  Receipt Date: 20021023
  Transmission Date: 20041129
  Serious: Yes (Other)
  Sender: FDA-Public Use
  Company Number: US-GLAXOSMITHKLINE-A0385442A

PATIENT
  Age: 41 Year
  Sex: Female
  Weight: 105.9 kg

DRUGS (1)
  1. IMITREX [Suspect]
     Indication: MIGRAINE
     Dosage: 6MG UNKNOWN
     Route: 058
     Dates: start: 20021009, end: 20021001

REACTIONS (1)
  - GRAND MAL CONVULSION [None]
